FAERS Safety Report 12470470 (Version 1)
Quarter: 2016Q2

REPORT INFORMATION
  Report Type: Spontaneous
  Country: CA (occurrence: CA)
  Receive Date: 20160616
  Receipt Date: 20160616
  Transmission Date: 20160815
  Serious: Yes (Other)
  Sender: FDA-Public Use
  Company Number: CA-PFIZER INC-2016277938

PATIENT
  Age: 65 Year
  Sex: Male
  Weight: 116 kg

DRUGS (11)
  1. MONOCOR [Concomitant]
     Active Substance: BISOPROLOL FUMARATE
     Dosage: UNK
     Dates: end: 2011
  2. PREVACID [Concomitant]
     Active Substance: LANSOPRAZOLE
     Dosage: UNK
     Dates: end: 2009
  3. LIPITOR [Suspect]
     Active Substance: ATORVASTATIN CALCIUM
     Indication: LIPIDS INCREASED
     Dosage: 20 MG, 1X/DAY
     Route: 048
     Dates: start: 200903, end: 201604
  4. ADALAT CC [Concomitant]
     Active Substance: NIFEDIPINE
     Dosage: 20 MG, UNK
     Dates: end: 2009
  5. PREDNISONE. [Concomitant]
     Active Substance: PREDNISONE
  6. CRESTOR [Suspect]
     Active Substance: ROSUVASTATIN CALCIUM
     Indication: LIPIDS INCREASED
     Dosage: 10 MG, UNK
     Route: 048
     Dates: start: 201604, end: 201604
  7. SYMBICORT [Concomitant]
     Active Substance: BUDESONIDE\FORMOTEROL FUMARATE DIHYDRATE
     Indication: COUGH
     Dosage: 200 UG, 2X/DAY
     Dates: start: 20140203, end: 20160525
  8. RESTORIL [Concomitant]
     Active Substance: TEMAZEPAM
     Dosage: 15 MG, UNK
     Route: 048
  9. ATIVAN [Concomitant]
     Active Substance: LORAZEPAM
     Dosage: 1 MG, 1X/DAY AS NEEDED
     Route: 048
  10. SPIRIVA [Concomitant]
     Active Substance: TIOTROPIUM BROMIDE MONOHYDRATE
     Indication: COUGH
     Dosage: 18 UG, 1X/DAY
     Dates: start: 2015, end: 201510
  11. ASA [Concomitant]
     Active Substance: ASPIRIN
     Indication: CORONARY ARTERY DISEASE
     Dosage: 81 MG, 1X/DAY
     Route: 048
     Dates: start: 200902

REACTIONS (3)
  - Asthma [Recovered/Resolved]
  - Lower respiratory tract infection [Recovered/Resolved]
  - Cough [Recovered/Resolved]

NARRATIVE: CASE EVENT DATE: 201311
